FAERS Safety Report 14978214 (Version 4)
Quarter: 2018Q2

REPORT INFORMATION
  Report Type: Spontaneous
  Country: CZ (occurrence: CZ)
  Receive Date: 20180606
  Receipt Date: 20180620
  Transmission Date: 20180711
  Serious: Yes (Life-Threatening, Other)
  Sender: FDA-Public Use
  Company Number: CZ-BAUSCH-BL-2018-015936

PATIENT
  Age: 62 Year
  Sex: Male

DRUGS (6)
  1. CALCIUM GLUCONICUM /00060701/ [Suspect]
     Active Substance: CALCIUM GLUCONATE
     Indication: PREMEDICATION
  2. CALCIUM GLUCONICUM /00060701/ [Suspect]
     Active Substance: CALCIUM GLUCONATE
     Indication: PROPHYLAXIS
     Route: 065
     Dates: start: 20151103, end: 20151103
  3. PALONOSETRON HOSPIRA [Suspect]
     Active Substance: PALONOSETRON HYDROCHLORIDE
     Indication: PREMEDICATION
  4. DEXAMETASON [Suspect]
     Active Substance: DEXAMETHASONE
     Indication: PROPHYLAXIS
     Route: 065
     Dates: start: 20151103, end: 20151103
  5. PALONOSETRON HOSPIRA [Suspect]
     Active Substance: PALONOSETRON HYDROCHLORIDE
     Indication: PROPHYLAXIS OF NAUSEA AND VOMITING
     Route: 065
     Dates: start: 20151103, end: 20151103
  6. DEXAMETASON [Suspect]
     Active Substance: DEXAMETHASONE
     Indication: PREMEDICATION

REACTIONS (3)
  - Anaphylactic reaction [Recovered/Resolved]
  - Cardio-respiratory arrest [Recovered/Resolved]
  - Circulatory collapse [Recovered/Resolved]

NARRATIVE: CASE EVENT DATE: 20151103
